FAERS Safety Report 23517264 (Version 1)
Quarter: 2024Q1

REPORT INFORMATION
  Report Type: 
  Country: None (occurrence: None)
  Receive Date: 20240213
  Receipt Date: 20240213
  Transmission Date: 20240410
  Serious: No
  Sender: FDA-Public Use
  Company Number: SK-ROCHE-3506427

PATIENT

DRUGS (5)
  1. POLIVY [Suspect]
     Active Substance: POLATUZUMAB VEDOTIN-PIIQ
  2. RITUXIMAB [Suspect]
     Active Substance: RITUXIMAB
  3. CYCLOPHOSPHAMIDE [Suspect]
     Active Substance: CYCLOPHOSPHAMIDE
  4. DOXORUBICIN HYDROCHLORIDE [Suspect]
     Active Substance: DOXORUBICIN HYDROCHLORIDE
  5. PREDNISONE [Suspect]
     Active Substance: PREDNISONE

REACTIONS (2)
  - COVID-19 [None]
  - Superinfection bacterial [None]
